FAERS Safety Report 23412618 (Version 1)
Quarter: 2024Q1

REPORT INFORMATION
  Report Type: Spontaneous
  Country: US (occurrence: US)
  Receive Date: 20240117
  Receipt Date: 20240117
  Transmission Date: 20240409
  Serious: No
  Sender: FDA-Public Use
  Company Number: US-NOVOPROD-1099721

PATIENT
  Sex: Female

DRUGS (2)
  1. NovoFine Plus 4mm (32G) [Concomitant]
     Indication: Device therapy
     Dosage: UNK
     Route: 058
  2. OZEMPIC [Suspect]
     Active Substance: SEMAGLUTIDE
     Indication: Type 2 diabetes mellitus
     Dosage: UNK
     Route: 058
     Dates: start: 202307

REACTIONS (2)
  - Skin sensitisation [Unknown]
  - Chills [Unknown]

NARRATIVE: CASE EVENT DATE: 20230701
